FAERS Safety Report 12346846 (Version 1)
Quarter: 2016Q2

REPORT INFORMATION
  Report Type: Report from Study
  Country: US (occurrence: US)
  Receive Date: 20160509
  Receipt Date: 20160509
  Transmission Date: 20160815
  Serious: No
  Sender: FDA-Public Use
  Company Number: PHEH2015US001689

PATIENT
  Sex: Female

DRUGS (2)
  1. GLEEVEC [Suspect]
     Active Substance: IMATINIB MESYLATE
     Dosage: 400 MG, UNK
     Route: 048
     Dates: start: 20141223, end: 20150114
  2. GLEEVEC [Suspect]
     Active Substance: IMATINIB MESYLATE
     Indication: CHORDOMA
     Dosage: 800 MG, QD
     Route: 048
     Dates: start: 20141002, end: 20141013

REACTIONS (7)
  - Off label use [Unknown]
  - Oedema [Recovered/Resolved]
  - Rash [Recovered/Resolved]
  - Feeling abnormal [Unknown]
  - Eye swelling [Unknown]
  - Erythema [Unknown]
  - Pruritus [Unknown]
